FAERS Safety Report 7199463-0 (Version None)
Quarter: 2010Q4

REPORT INFORMATION
  Report Type: 
  Country: None (occurrence: None)
  Receive Date: 20101228
  Receipt Date: 20101222
  Transmission Date: 20110411
  Serious: Yes (Death)
  Sender: FDA-Public Use
  Company Number: JP-SANOFI-AVENTIS-2010SA077599

PATIENT
  Age: 72 Year
  Sex: Male
  Weight: 75 kg

DRUGS (9)
  1. PLAVIX [Suspect]
     Route: 048
     Dates: start: 20091121, end: 20100329
  2. ASPIRIN [Concomitant]
     Route: 048
     Dates: end: 20100329
  3. TAKEPRON [Concomitant]
     Indication: PROPHYLAXIS
     Route: 048
     Dates: start: 20091121, end: 20100329
  4. LASIX [Concomitant]
     Route: 048
     Dates: start: 20091126, end: 20100329
  5. ALDACTONE [Concomitant]
     Route: 048
     Dates: start: 20091126, end: 20100329
  6. RENIVACE [Concomitant]
     Indication: HYPERTENSION
     Route: 048
     Dates: start: 20091226, end: 20100329
  7. GLYBURIDE [Concomitant]
     Route: 048
     Dates: start: 20091226, end: 20100329
  8. ZYLORIC ^FRESENIUS^ [Concomitant]
     Route: 048
     Dates: start: 20091208, end: 20100329
  9. WARFARIN SODIUM [Concomitant]
     Indication: THROMBOSIS PROPHYLAXIS
     Route: 048
     Dates: start: 20091224, end: 20100329

REACTIONS (1)
  - PNEUMONIA [None]
